FAERS Safety Report 7721506-3 (Version None)
Quarter: 2011Q3

REPORT INFORMATION
  Report Type: 
  Country: None (occurrence: None)
  Receive Date: 20110831
  Receipt Date: 20110829
  Transmission Date: 20111222
  Serious: Yes (Death, Other)
  Sender: FDA-Public Use
  Company Number: AR-BAYER-2011-078701

PATIENT
  Sex: Male

DRUGS (6)
  1. PREGABALIN [Concomitant]
     Dosage: UNK
  2. NEXAVAR [Suspect]
     Indication: RENAL CANCER METASTATIC
     Dosage: 400 MG, BID
     Route: 048
     Dates: start: 20110819, end: 20110821
  3. SUPRAGESIC [Concomitant]
     Indication: METASTASES TO BONE
     Dosage: UNK
     Route: 048
     Dates: start: 20110817, end: 20110826
  4. DIAZEPAM [Concomitant]
     Dosage: UNK
  5. RED BLOOD CELLS [Concomitant]
     Dosage: 2 U, UNK
     Dates: start: 20110824
  6. NEXAVAR [Suspect]
     Dosage: 200 MG, BID
     Route: 048
     Dates: start: 20110822, end: 20110826

REACTIONS (5)
  - SENSORY LOSS [None]
  - DYSPNOEA [None]
  - PNEUMONIA [None]
  - HEPATIC FAILURE [None]
  - JAUNDICE [None]
